FAERS Safety Report 20985812 (Version 5)
Quarter: 2023Q1

REPORT INFORMATION
  Report Type: Report from Study
  Country: AR (occurrence: AR)
  Receive Date: 20220621
  Receipt Date: 20230117
  Transmission Date: 20230418
  Serious: Yes (Other)
  Sender: FDA-Public Use
  Company Number: AR-NOVARTISPH-NVSC2022AR140579

PATIENT
  Age: 76 Year
  Sex: Female

DRUGS (3)
  1. COSENTYX [Suspect]
     Active Substance: SECUKINUMAB
     Indication: Psoriatic arthropathy
     Dosage: 150 MG, QMO
     Route: 058
     Dates: start: 20220608
  2. COSENTYX [Suspect]
     Active Substance: SECUKINUMAB
     Dosage: 300 MG, QMO
     Route: 058
  3. PENICILLIN [Suspect]
     Active Substance: PENICILLIN
     Indication: Product used for unknown indication
     Dosage: UNK
     Route: 065

REACTIONS (22)
  - Rheumatoid arthritis [Unknown]
  - Pain [Unknown]
  - Pain in extremity [Unknown]
  - Diverticulitis [Unknown]
  - Foot deformity [Unknown]
  - Psoriasis [Unknown]
  - Injection site pain [Unknown]
  - Colitis [Unknown]
  - Gastrointestinal disorder [Recovering/Resolving]
  - Irritable bowel syndrome [Unknown]
  - Gastritis [Unknown]
  - Eating disorder [Unknown]
  - Renal pain [Unknown]
  - Nervousness [Unknown]
  - Anxiety [Unknown]
  - Constipation [Unknown]
  - Condition aggravated [Unknown]
  - Intervertebral disc protrusion [Unknown]
  - Gait disturbance [Unknown]
  - Arthralgia [Unknown]
  - Gait inability [Unknown]
  - Malaise [Unknown]

NARRATIVE: CASE EVENT DATE: 20220703
